FAERS Safety Report 5070671-8 (Version None)
Quarter: 2006Q3

REPORT INFORMATION
  Report Type: 
  Country: None (occurrence: None)
  Receive Date: 20060804
  Receipt Date: 20050908
  Transmission Date: 20061208
  Serious: No
  Sender: FDA-Public Use
  Company Number: US-GLAXOSMITHKLINE-A0573425A

PATIENT
  Age: 71 Year
  Sex: Female

DRUGS (1)
  1. NICORETTE (MINT) [Suspect]
     Dates: start: 20050826

REACTIONS (2)
  - DRUG INEFFECTIVE [None]
  - NICOTINE DEPENDENCE [None]
